FAERS Safety Report 9697782 (Version 1)
Quarter: 2013Q4

REPORT INFORMATION
  Report Type: Spontaneous
  Country: US (occurrence: US)
  Receive Date: 20131120
  Receipt Date: 20131120
  Transmission Date: 20140711
  Serious: No
  Sender: FDA-Public Use
  Company Number: US-PFIZER INC-2013327569

PATIENT
  Age: 47 Year
  Sex: Male
  Weight: 68.03 kg

DRUGS (2)
  1. VIAGRA [Suspect]
     Indication: CARDIOVASCULAR DISORDER
     Dosage: 25 MG, AS NEEDED
     Route: 048
     Dates: start: 201311
  2. VIAGRA [Suspect]
     Dosage: 50 MG, TWO TABLETS OF 25MG EACH, UNK

REACTIONS (2)
  - Off label use [Unknown]
  - Drug ineffective for unapproved indication [Unknown]
